FAERS Safety Report 5065416-1 (Version None)
Quarter: 2006Q3

REPORT INFORMATION
  Report Type: 
  Country: None (occurrence: None)
  Receive Date: 20060725
  Receipt Date: 20060710
  Transmission Date: 20061208
  Serious: Yes (Other)
  Sender: FDA-Public Use
  Company Number: 2006RR-02983

PATIENT
  Age: 72 Year
  Sex: Male

DRUGS (3)
  1. MIRTAZAPINE [Suspect]
     Indication: DEMENTIA
     Dosage: 30 MG, ORAL
     Route: 048
     Dates: start: 20040101, end: 20060608
  2. ASPIRIN [Concomitant]
  3. SIMVASTATIN TABLET 40MG (SIMVASTATIN) TABLET [Concomitant]

REACTIONS (2)
  - HAEMATURIA [None]
  - THROMBOCYTOPENIA [None]
